FAERS Safety Report 5584402-6 (Version None)
Quarter: 2008Q1

REPORT INFORMATION
  Report Type: 
  Country: None (occurrence: None)
  Receive Date: 20080108
  Receipt Date: 20071204
  Transmission Date: 20080703
  Serious: Yes (Death, Other)
  Sender: FDA-Public Use
  Company Number: GB-MERCK-0712GBR00045

PATIENT
  Age: 14 Year
  Sex: Male

DRUGS (2)
  1. CANCIDAS [Suspect]
     Indication: SYSTEMIC ANTIFUNGAL TREATMENT
     Route: 041
  2. VORICONAZOLE [Concomitant]
     Indication: SYSTEMIC ANTIFUNGAL TREATMENT
     Route: 065

REACTIONS (5)
  - ACUTE RESPIRATORY DISTRESS SYNDROME [None]
  - ASPERGILLOSIS [None]
  - DRUG INEFFECTIVE [None]
  - INFECTION [None]
  - MULTI-ORGAN FAILURE [None]
